FAERS Safety Report 15369130 (Version 1)
Quarter: 2018Q3

REPORT INFORMATION
  Report Type: Report from Study
  Country: US (occurrence: US)
  Receive Date: 20180911
  Receipt Date: 20180911
  Transmission Date: 20181010
  Serious: Yes (Other)
  Sender: FDA-Public Use
  Company Number: US-BRISTOL-MYERS SQUIBB COMPANY-BMS-2018-057978

PATIENT
  Age: 45 Year
  Sex: Male

DRUGS (4)
  1. ABATACEPT [Suspect]
     Active Substance: ABATACEPT
     Indication: PSORIATIC ARTHROPATHY
     Dosage: UNK, Q2WK
     Route: 042
     Dates: start: 20180604
  2. FOLIC ACID. [Concomitant]
     Active Substance: FOLIC ACID
     Indication: PRODUCT USED FOR UNKNOWN INDICATION
     Dosage: UNK
     Route: 065
  3. METHYLPREDNISOLONE. [Concomitant]
     Active Substance: METHYLPREDNISOLONE
     Indication: PRODUCT USED FOR UNKNOWN INDICATION
     Dosage: 4 MG, QD
     Route: 048
  4. METHOTREXATE. [Concomitant]
     Active Substance: METHOTREXATE
     Indication: ARTHRITIS
     Dosage: 2.5 MG, QWK
     Route: 048

REACTIONS (6)
  - Diarrhoea [Unknown]
  - Dyschezia [Unknown]
  - Psoriatic arthropathy [Unknown]
  - Abdominal pain upper [Unknown]
  - Nausea [Unknown]
  - Faeces hard [Unknown]

NARRATIVE: CASE EVENT DATE: 20180604
